FAERS Safety Report 4535781-X (Version None)
Quarter: 2004Q4

REPORT INFORMATION
  Report Type: 
  Country: None (occurrence: None)
  Receive Date: 20041223
  Receipt Date: 20040308
  Transmission Date: 20050328
  Serious: No
  Sender: FDA-Public Use
  Company Number: US-GLAXOSMITHKLINE-A0501608A

PATIENT
  Age: 69 Year
  Sex: Female

DRUGS (9)
  1. FLONASE [Suspect]
     Dosage: 1SPR PER DAY
     Route: 045
     Dates: start: 19950101
  2. SINGULAIR [Concomitant]
  3. PRAVACHOL [Concomitant]
  4. NEXIUM [Concomitant]
  5. CLARINEX [Concomitant]
  6. ACEON [Concomitant]
  7. ASPIRIN [Concomitant]
  8. MULTIVITAMIN [Concomitant]
  9. ADVAIR DISKUS 100/50 [Concomitant]

REACTIONS (1)
  - EPISTAXIS [None]
